FAERS Safety Report 21940317 (Version 1)
Quarter: 2023Q1

REPORT INFORMATION
  Report Type: Spontaneous
  Country: GB (occurrence: GB)
  Receive Date: 20230201
  Receipt Date: 20230201
  Transmission Date: 20230418
  Serious: No
  Sender: FDA-Public Use
  Company Number: GB-EXELIXIS-CABO-22050732

PATIENT
  Age: 19 Year
  Sex: Female

DRUGS (2)
  1. CABOMETYX [Suspect]
     Active Substance: CABOZANTINIB S-MALATE
     Indication: Ewing^s sarcoma metastatic
     Dosage: 60 MG, QD
  2. CABOMETYX [Suspect]
     Active Substance: CABOZANTINIB S-MALATE
     Indication: Metastases to bone
     Dosage: 60 MG, QOD

REACTIONS (3)
  - Toxicity to various agents [Unknown]
  - Inappropriate schedule of product administration [Unknown]
  - Off label use [Unknown]
